FAERS Safety Report 5641326-3 (Version None)
Quarter: 2008Q1

REPORT INFORMATION
  Report Type: 
  Country: None (occurrence: None)
  Receive Date: 20080227
  Receipt Date: 20070523
  Transmission Date: 20080703
  Serious: No
  Sender: FDA-Public Use
  Company Number: A0652300A

PATIENT
  Age: 51 Year
  Sex: Female

DRUGS (2)
  1. NICORETTE (MINT) [Suspect]
  2. NICODERM CQ [Suspect]

REACTIONS (4)
  - DIZZINESS [None]
  - INTENTIONAL DRUG MISUSE [None]
  - MALAISE [None]
  - PHARYNGOLARYNGEAL PAIN [None]
